FAERS Safety Report 11176523 (Version 3)
Quarter: 2018Q4

REPORT INFORMATION
  Report Type: Spontaneous
  Country: CA (occurrence: CA)
  Receive Date: 20150610
  Receipt Date: 20181221
  Transmission Date: 20190204
  Serious: Yes (Hospitalization, Other)
  Sender: FDA-Public Use
  Company Number: CA-009507513-1506CAN002215

PATIENT
  Age: 31 Year
  Sex: Female

DRUGS (1)
  1. EZETROL [Suspect]
     Active Substance: EZETIMIBE
     Indication: TYPE IIA HYPERLIPIDAEMIA
     Dosage: DAILY DOSE: 10 MG
     Route: 048
     Dates: start: 201205

REACTIONS (3)
  - Bronchitis [Recovering/Resolving]
  - Infection [Recovering/Resolving]
  - Thyroid cancer [Unknown]

NARRATIVE: CASE EVENT DATE: 201402
